FAERS Safety Report 7958996-7 (Version None)
Quarter: 2011Q4

REPORT INFORMATION
  Report Type: 
  Country: None (occurrence: None)
  Receive Date: 20111130
  Receipt Date: 20111116
  Transmission Date: 20120403
  Serious: Yes (Other)
  Sender: FDA-Public Use
  Company Number: 2011P1010934

PATIENT
  Age: 64 Year
  Sex: Female
  Weight: 75.7507 kg

DRUGS (12)
  1. WARFARIN SODIUM [Suspect]
     Indication: ATRIAL FIBRILLATION
     Dosage: 5 MG;4 DAYS A WEEK ; 7.5 MG;3 DAYS A WEEK
     Dates: start: 20010101
  2. WARFARIN SODIUM [Suspect]
     Indication: ATRIAL FIBRILLATION
     Dosage: 5 MG;4 DAYS A WEEK ; 7.5 MG;3 DAYS A WEEK
     Dates: start: 20010101
  3. OMEPRAZOLE [Concomitant]
  4. SLEEPING PILL (UNSPECIFIED) [Concomitant]
  5. CARTIA XT [Concomitant]
  6. GLIMEPIRIDE [Concomitant]
  7. VESICARE [Concomitant]
  8. ARIMIDEX [Concomitant]
  9. SINUS PILL (UNSPECIFIED) [Concomitant]
  10. METFORMIN HCL [Concomitant]
  11. TOPIRAMATE [Concomitant]
  12. CRESTOR [Concomitant]

REACTIONS (4)
  - URINARY TRACT INFECTION [None]
  - BRONCHITIS CHRONIC [None]
  - CONDITION AGGRAVATED [None]
  - BREAST CANCER [None]
